FAERS Safety Report 8392977 (Version 2)
Quarter: 2012Q4

REPORT INFORMATION
  Report Type: 
  Country: IN (occurrence: IN)
  Receive Date: 20120207
  Receipt Date: 20121206
  Transmission Date: 20130627
  Serious: Yes (Death, Other)
  Sender: FDA-Public Use
  Company Number: IN-RANBAXY-2012RR-52189

PATIENT
  Age: 45 Year
  Sex: Male

DRUGS (13)
  1. ZOLPIDEM [Suspect]
     Indication: SLEEP DISORDER
     Dosage: 10 mg, on day 13
     Route: 065
  2. ZOLPIDEM [Suspect]
     Indication: SLEEP DISORDER
     Dosage: 15 mg, on day 17
     Route: 065
  3. ZOLPIDEM [Suspect]
     Indication: SLEEP DISORDER
     Dosage: 20 mg, on day 18
     Route: 065
  4. ZOLPIDEM [Suspect]
     Indication: SLEEP DISORDER
     Dosage: 25 mg, UNK
     Route: 065
  5. ZOLPIDEM [Suspect]
     Indication: SLEEP DISORDER
     Dosage: 20 mg, UNK
     Route: 065
  6. ZOLPIDEM [Suspect]
     Indication: SLEEP DISORDER
     Dosage: 7.5 mg, UNK
     Route: 065
  7. ESCITALOPRAM [Concomitant]
     Indication: PRODUCT USED FOR UNKNOWN INDICATION
     Dosage: 10-20 mg
     Route: 065
  8. ESCITALOPRAM [Concomitant]
     Indication: PRODUCT USED FOR UNKNOWN INDICATION
     Dosage: 20 mg/day
     Route: 065
  9. LORAZEPAM [Concomitant]
     Indication: ALCOHOL DETOXIFICATION
     Dosage: 8 mg/day
     Route: 065
  10. PROPANOLOL [Concomitant]
     Indication: TREMOR
     Dosage: 40 mg/day, on day 1
     Route: 065
  11. PROPANOLOL [Concomitant]
     Indication: TREMOR
     Dosage: 80 mg/day, on day 24
     Route: 065
  12. MIRTAZAPINE [Concomitant]
     Indication: SLEEP DISORDER
     Dosage: 7.5 mg, UNK
     Route: 065
  13. PROPANOLOL [Concomitant]
     Indication: TREMOR
     Dosage: 120 mg/day, on day 29
     Route: 065

REACTIONS (3)
  - Delirium [Recovered/Resolved]
  - Drug withdrawal syndrome [Recovered/Resolved]
  - Incorrect dose administered [Unknown]
